FAERS Safety Report 19746768 (Version 1)
Quarter: 2021Q3

REPORT INFORMATION
  Report Type: Spontaneous
  Country: US (occurrence: US)
  Receive Date: 20210825
  Receipt Date: 20210825
  Transmission Date: 20211014
  Serious: No
  Sender: FDA-Public Use
  Company Number: US-GALDERMA-US2021013964

PATIENT

DRUGS (4)
  1. DIFFERIN REFRESHING CLEANSER [Suspect]
     Active Substance: COSMETICS
     Indication: RASH
     Dosage: 1 DOSAGE FORM, UNKNOWN
     Route: 061
     Dates: start: 20210628
  2. DIFFERIN RESTORATIVE NIGHT MOISTURIZER [Suspect]
     Active Substance: COSMETICS
     Indication: RASH
     Dosage: 1 DOSAGE FORM, UNKNOWN
     Route: 061
     Dates: start: 20210628
  3. DIFFERIN GEL [Suspect]
     Active Substance: ADAPALENE
     Indication: RASH
     Dosage: 1 DOSAGE FORM, UNKNOWN
     Route: 061
     Dates: start: 20210628
  4. KORRES MOISTURIZER WITH SERUM [Concomitant]
     Indication: PRODUCT USED FOR UNKNOWN INDICATION
     Dosage: 1 DOSAGE FORM, UNKNOWN
     Route: 061

REACTIONS (8)
  - Drug ineffective for unapproved indication [Recovered/Resolved]
  - Dry skin [Recovered/Resolved]
  - Skin irritation [Not Recovered/Not Resolved]
  - Erythema [Not Recovered/Not Resolved]
  - Product use in unapproved indication [Recovered/Resolved]
  - Rash [Not Recovered/Not Resolved]
  - Dermatitis [Not Recovered/Not Resolved]
  - Pruritus [Recovered/Resolved]

NARRATIVE: CASE EVENT DATE: 202106
